FAERS Safety Report 5939676-6 (Version None)
Quarter: 2008Q4

REPORT INFORMATION
  Report Type: 
  Country: None (occurrence: None)
  Receive Date: 20081030
  Receipt Date: 20081030
  Transmission Date: 20090506
  Serious: Yes (Hospitalization)
  Sender: FDA-Public Use
  Company Number: None

PATIENT
  Age: 57 Year
  Sex: Female
  Weight: 58.0604 kg

DRUGS (1)
  1. MIRALAX [Suspect]
     Indication: CONSTIPATION

REACTIONS (2)
  - DEHYDRATION [None]
  - DIARRHOEA [None]
